FAERS Safety Report 4413769-7 (Version None)
Quarter: 2004Q3

REPORT INFORMATION
  Report Type: 
  Country: None (occurrence: None)
  Receive Date: 20040728
  Receipt Date: 20040715
  Transmission Date: 20050211
  Serious: Yes (Other)
  Sender: FDA-Public Use
  Company Number: 2004028051

PATIENT
  Age: 55 Year
  Sex: Male
  Weight: 76.6579 kg

DRUGS (13)
  1. VIAGRA [Suspect]
     Indication: ERECTILE DYSFUNCTION
     Dosage: 50 MG (1 IN 1 D), ORAL
     Route: 048
     Dates: start: 20040101
  2. VENLAFAXINE HCL [Concomitant]
  3. CLONAZEPAM [Concomitant]
  4. HYDROCODONE BITARTRATE [Concomitant]
  5. BACLOFEN [Concomitant]
  6. LISINOPRIL [Concomitant]
  7. ATORVASTATIN CALCIUM [Concomitant]
  8. CALCIUM CITRATE (CALCIUM CITRATE) [Concomitant]
  9. CARISOPRODOL [Concomitant]
  10. HYDROCHLOROTHIAZIDE [Concomitant]
  11. TYLENOL PM (DIPHENHYDRAMINE, PARACETAMOL) [Concomitant]
  12. CYCANOCOBALAMIN (CYANOCOBALAMIN) [Concomitant]
  13. PYRIDOXINE HCL [Concomitant]

REACTIONS (3)
  - AMNESIA [None]
  - BLOOD PRESSURE DECREASED [None]
  - PAIN IN EXTREMITY [None]
